FAERS Safety Report 10351746 (Version 3)
Quarter: 2018Q3

REPORT INFORMATION
  Report Type: Spontaneous
  Country: US (occurrence: US)
  Receive Date: 20140730
  Receipt Date: 20180726
  Transmission Date: 20181010
  Serious: Yes (Other)
  Sender: FDA-Public Use
  Company Number: US-JNJFOC-20140719539

PATIENT
  Age: 12 Year
  Sex: Male

DRUGS (2)
  1. RISPERDAL [Suspect]
     Active Substance: RISPERIDONE
     Indication: DEPRESSION
     Dosage: 0.5 MG TO 01 MG
     Route: 048
     Dates: start: 199905, end: 199906
  2. RISPERDAL [Suspect]
     Active Substance: RISPERIDONE
     Indication: DEPRESSION
     Route: 048
     Dates: start: 1999, end: 2001

REACTIONS (5)
  - Off label use [Unknown]
  - Galactorrhoea [Unknown]
  - Product use in unapproved indication [Unknown]
  - Gynaecomastia [Unknown]
  - Hyperprolactinaemia [Unknown]

NARRATIVE: CASE EVENT DATE: 199905
